FAERS Safety Report 25407544 (Version 1)
Quarter: 2025Q2

REPORT INFORMATION
  Report Type: Spontaneous
  Country: US (occurrence: None)
  Receive Date: 20250605
  Receipt Date: 20250605
  Transmission Date: 20250717
  Serious: Yes (Life-Threatening, Other)
  Sender: FDA-CTU
  Company Number: None

PATIENT
  Age: 71 Year
  Sex: Male
  Weight: 94.95 kg

DRUGS (1)
  1. GAMMAKED [Suspect]
     Active Substance: HUMAN IMMUNOGLOBULIN G
     Indication: Chronic inflammatory demyelinating polyradiculoneuropathy
     Route: 042
     Dates: start: 20250521, end: 20250524

REACTIONS (2)
  - Deep vein thrombosis [None]
  - Infusion related reaction [None]

NARRATIVE: CASE EVENT DATE: 20250605
